FAERS Safety Report 15197736 (Version 1)
Quarter: 2018Q3

REPORT INFORMATION
  Report Type: Spontaneous
  Country: US (occurrence: US)
  Receive Date: 20180627
  Receipt Date: 20180627
  Transmission Date: 20181010
  Serious: Yes (Hospitalization)
  Sender: FDA-Public Use
  Company Number: None

PATIENT
  Sex: Female

DRUGS (9)
  1. TRACLEER [Concomitant]
     Active Substance: BOSENTAN
  2. SILDENAFIL. [Concomitant]
     Active Substance: SILDENAFIL
  3. FLOVENT [Concomitant]
     Active Substance: FLUTICASONE PROPIONATE
  4. NEULASTA [Suspect]
     Active Substance: PEGFILGRASTIM
     Indication: INFECTION PROPHYLAXIS
     Route: 058
     Dates: start: 20180420
  5. TYLENOL [Concomitant]
     Active Substance: ACETAMINOPHEN
  6. BACTRIM [Concomitant]
     Active Substance: SULFAMETHOXAZOLE\TRIMETHOPRIM
  7. FLUTICASONE. [Concomitant]
     Active Substance: FLUTICASONE
  8. LEUKINE [Suspect]
     Active Substance: SARGRAMOSTIM
     Indication: TRANSPLANT
     Dosage: ?          OTHER FREQUENCY:ONCE EVERY 21 DAYS;?
     Route: 058
     Dates: start: 20180622
  9. ALBUTEROL. [Concomitant]
     Active Substance: ALBUTEROL

REACTIONS (1)
  - Hospitalisation [None]

NARRATIVE: CASE EVENT DATE: 2018
